FAERS Safety Report 8896354 (Version 1)
Quarter: 2012Q4

REPORT INFORMATION
  Report Type: Spontaneous
  Country: US (occurrence: None)
  Receive Date: 20121107
  Receipt Date: 20121107
  Transmission Date: 20130627
  Serious: Yes (Hospitalization, Other)
  Sender: FDA-Public Use
  Company Number: None

PATIENT
  Age: 62 Year
  Sex: Male
  Weight: 74 kg

DRUGS (1)
  1. BOCEPREVIR [Suspect]
     Indication: VIRAL HEPATITIS C
     Dosage: 800mg Q8h po
     Route: 048
     Dates: start: 20120207, end: 20121001

REACTIONS (5)
  - Fall [None]
  - Petit mal epilepsy [None]
  - Subdural haematoma [None]
  - Partial seizures [None]
  - Convulsive threshold lowered [None]
